FAERS Safety Report 4873768-8 (Version None)
Quarter: 2006Q1

REPORT INFORMATION
  Report Type: 
  Country: None (occurrence: None)
  Receive Date: 20060103
  Receipt Date: 20060103
  Transmission Date: 20060701
  Serious: Yes (Hospitalization)
  Sender: FDA-Public Use
  Company Number: None

PATIENT
  Sex: Male

DRUGS (3)
  1. GATLIFLOXACIN   200MG [Suspect]
     Indication: URINARY TRACT INFECTION
     Dosage: 200 MG  DAILY   IV
     Route: 042
     Dates: start: 20051213, end: 20051216
  2. ZOSYN [Suspect]
     Indication: PNEUMONIA
     Dosage: 2.25 GM  Q8HRS   IV
     Route: 042
     Dates: start: 20051203, end: 20051211
  3. VANCOMYCIN [Concomitant]

REACTIONS (1)
  - DIARRHOEA [None]
